FAERS Safety Report 7202875-X (Version None)
Quarter: 2010Q4

REPORT INFORMATION
  Report Type: 
  Country: None (occurrence: None)
  Receive Date: 20101229
  Receipt Date: 20101220
  Transmission Date: 20110411
  Serious: Yes (Hospitalization)
  Sender: FDA-Public Use
  Company Number: SE-PFIZER INC-2010175359

PATIENT
  Age: 36 Year
  Sex: Male

DRUGS (3)
  1. LYRICA [Suspect]
     Indication: ANXIETY DISORDER
     Dosage: UNK
     Route: 048
     Dates: start: 20090901
  2. SOBRIL [Suspect]
     Dosage: UNK
     Route: 065
  3. DIAZEPAM [Suspect]
     Dosage: UNK
     Route: 065

REACTIONS (1)
  - DEPENDENCE [None]
